FAERS Safety Report 18207700 (Version 1)
Quarter: 2020Q3

REPORT INFORMATION
  Report Type: Spontaneous
  Country: US (occurrence: US)
  Receive Date: 20200828
  Receipt Date: 20200828
  Transmission Date: 20201103
  Serious: No
  Sender: FDA-Public Use
  Company Number: US-PFIZER INC-2020331963

PATIENT
  Age: 34 Year
  Sex: Male
  Weight: 127.01 kg

DRUGS (1)
  1. PHENYTOIN. [Suspect]
     Active Substance: PHENYTOIN
     Indication: EPILEPSY
     Dosage: 400 MG, DAILY (100MG BY MOUTH, ONE 100MG IN THE MORNING AND THREE 100MG AT NIGHT)
     Route: 048

REACTIONS (5)
  - Headache [Unknown]
  - Abdominal discomfort [Unknown]
  - Malaise [Unknown]
  - Feeling abnormal [Unknown]
  - Hangover [Unknown]
